FAERS Safety Report 4528887-2 (Version None)
Quarter: 2004Q4

REPORT INFORMATION
  Report Type: 
  Country: None (occurrence: None)
  Receive Date: 20041214
  Receipt Date: 20041207
  Transmission Date: 20050328
  Serious: Yes (Other)
  Sender: FDA-Public Use
  Company Number: GBWYE261907DEC04

PATIENT
  Age: 28 Year
  Sex: Male

DRUGS (2)
  1. EFFEXOR XR [Suspect]
     Indication: DEPRESSION
     Dosage: 75 MG 2X PER 1 DAY
     Dates: start: 20041101, end: 20041201
  2. DICLOFENAC (DICLOFENAC) [Concomitant]

REACTIONS (4)
  - HEPATIC PAIN [None]
  - RECTAL HAEMORRHAGE [None]
  - RENAL PAIN [None]
  - VISUAL DISTURBANCE [None]
